FAERS Safety Report 8952526 (Version 2)
Quarter: 2013Q1

REPORT INFORMATION
  Report Type: Report from Study
  Country: US (occurrence: US)
  Receive Date: 20121205
  Receipt Date: 20130103
  Transmission Date: 20140127
  Serious: Yes (Death, Life-Threatening, Hospitalization, Other)
  Sender: FDA-Public Use
  Company Number: US-GENZYME-MOZO-1000788

PATIENT
  Age: 72 None
  Sex: Male
  Weight: 84 kg

DRUGS (20)
  1. MOZOBIL [Suspect]
     Indication: HAEMATOPOIETIC STEM CELL MOBILISATION
     Dosage: 20 MG, UNK
     Route: 058
     Dates: start: 20120510, end: 20120510
  2. MOZOBIL [Suspect]
     Indication: NON-HODGKIN^S LYMPHOMA
  3. G-CSF [Suspect]
     Indication: HAEMATOPOIETIC STEM CELL MOBILISATION
     Dosage: UNK
     Route: 065
     Dates: start: 201205
  4. RITUXIMAB [Suspect]
     Indication: HAEMATOPOIETIC STEM CELL MOBILISATION
     Dosage: UNK
     Route: 065
     Dates: start: 201205
  5. IFOSFAMIDE [Suspect]
     Indication: HAEMATOPOIETIC STEM CELL MOBILISATION
     Dosage: UNK
     Route: 065
     Dates: start: 201205
  6. CARBOPLATIN [Suspect]
     Indication: HAEMATOPOIETIC STEM CELL MOBILISATION
     Dosage: UNK
     Route: 065
     Dates: start: 201205
  7. ETOPOSIDE [Suspect]
     Indication: HAEMATOPOIETIC STEM CELL MOBILISATION
     Dosage: UNK
     Route: 065
     Dates: start: 201205
  8. REVLIMID [Concomitant]
     Indication: NON-HODGKIN^S LYMPHOMA
     Dosage: 10 MG, QD
     Route: 065
  9. ALFUZOSIN [Concomitant]
     Indication: PRODUCT USED FOR UNKNOWN INDICATION
     Dosage: 10 MG, QD (EVERY BEDTIME)
     Route: 048
  10. FINASTERIDE [Concomitant]
     Indication: PRODUCT USED FOR UNKNOWN INDICATION
     Dosage: 5 MG, QD (EVERY BED TIME)
     Route: 048
  11. MULTIVITAMINS W [Concomitant]
     Indication: PRODUCT USED FOR UNKNOWN INDICATION
     Dosage: UNK
     Route: 048
  12. PROTONIX [Concomitant]
     Indication: GASTROOESOPHAGEAL REFLUX PROPHYLAXIS
     Dosage: UNK
     Route: 065
  13. LACTULOSE [Concomitant]
     Indication: CONSTIPATION
     Dosage: UNK
     Route: 065
  14. MIRALAX [Concomitant]
     Indication: CONSTIPATION
  15. DOCUSATE [Concomitant]
     Indication: PRODUCT USED FOR UNKNOWN INDICATION
     Dosage: 1 DF, BID
     Route: 048
  16. DOCUSATE [Concomitant]
     Dosage: 100 MG, QD
     Route: 048
  17. SIMVASTATIN [Concomitant]
     Indication: PRODUCT USED FOR UNKNOWN INDICATION
     Dosage: 40 MG, QD (EVERY BED TIME)
     Route: 048
  18. TOVIAZ [Concomitant]
     Indication: PRODUCT USED FOR UNKNOWN INDICATION
     Dosage: 8 MG, QD
     Route: 048
  19. ACYCLOVIR [Concomitant]
     Indication: PRODUCT USED FOR UNKNOWN INDICATION
     Dosage: 800 MG, UNK (EVERY 12 HRS)
     Route: 048
  20. URSODIOL [Concomitant]
     Indication: PRODUCT USED FOR UNKNOWN INDICATION
     Dosage: 2 DF, BID
     Route: 048

REACTIONS (14)
  - Disseminated intravascular coagulation [Unknown]
  - Hepatic lesion [Fatal]
  - Non-Hodgkin^s lymphoma [Fatal]
  - Renal failure [Fatal]
  - Leukopenia [Fatal]
  - Anaemia [Unknown]
  - Sepsis [Fatal]
  - Hypotension [Fatal]
  - Generalised oedema [Fatal]
  - Pericardial effusion [Fatal]
  - Pleural effusion [Fatal]
  - Metabolic acidosis [Fatal]
  - Thrombocytopenia [Fatal]
  - International normalised ratio increased [Fatal]
